FAERS Safety Report 16197671 (Version 1)
Quarter: 2019Q2

REPORT INFORMATION
  Report Type: Report from Study
  Country: US (occurrence: US)
  Receive Date: 20190415
  Receipt Date: 20190415
  Transmission Date: 20190711
  Serious: Yes (Life-Threatening, Hospitalization, Other)
  Sender: FDA-Public Use
  Company Number: US-RECRO GAINESVILLE LLC-REPH-2019-000053

PATIENT
  Age: 14 Year
  Sex: Female

DRUGS (1)
  1. VERAPAMIL HYDROCHLORIDE SUSTAINED RELEASE [Suspect]
     Active Substance: VERAPAMIL HYDROCHLORIDE
     Dosage: 15-20 TABLETS, ONE TIME DOSE
     Route: 048

REACTIONS (10)
  - Device related infection [Recovered/Resolved]
  - Intentional overdose [Recovered/Resolved]
  - Acute respiratory distress syndrome [Recovered/Resolved]
  - Cardiac arrest [Recovered/Resolved]
  - Hypotension [Recovered/Resolved]
  - Atrioventricular block [Recovered/Resolved]
  - Pulmonary oedema [Recovered/Resolved]
  - Cardiac neoplasm unspecified [Recovered/Resolved]
  - Hyperglycaemia [Recovered/Resolved]
  - Lactic acidosis [Recovered/Resolved]
